FAERS Safety Report 8353634-6 (Version None)
Quarter: 2012Q2

REPORT INFORMATION
  Report Type: 
  Country: None (occurrence: None)
  Receive Date: 20120511
  Receipt Date: 20110826
  Transmission Date: 20120825
  Serious: No
  Sender: FDA-Public Use
  Company Number: US-GLAXOSMITHKLINE-A0942923A

PATIENT
  Sex: Female

DRUGS (5)
  1. WELLBUTRIN [Concomitant]
  2. XELODA [Suspect]
     Indication: BREAST CANCER
     Dosage: 3500MG PER DAY
     Dates: start: 20111001
  3. VICODIN [Concomitant]
  4. TYKERB [Suspect]
     Indication: BREAST CANCER
     Dosage: 1000MG PER DAY
     Route: 048
     Dates: start: 20110601
  5. ZOMETA [Concomitant]

REACTIONS (6)
  - PARAESTHESIA [None]
  - PRURITUS [None]
  - DRY SKIN [None]
  - MUSCLE SPASMS [None]
  - NAIL INFECTION [None]
  - BLOOD POTASSIUM DECREASED [None]
